FAERS Safety Report 19935875 (Version 1)
Quarter: 2021Q4

REPORT INFORMATION
  Report Type: Spontaneous
  Country: KR (occurrence: KR)
  Receive Date: 20211008
  Receipt Date: 20211008
  Transmission Date: 20220303
  Serious: Yes (Hospitalization, Other)
  Sender: FDA-Public Use
  Company Number: KR-SLATE RUN PHARMACEUTICALS-21KR000710

PATIENT

DRUGS (6)
  1. AZITHROMYCIN [Suspect]
     Active Substance: AZITHROMYCIN
     Indication: Pyrexia
     Dosage: 500 MILLIGRAM
     Route: 048
  2. AZITHROMYCIN [Suspect]
     Active Substance: AZITHROMYCIN
     Indication: Cough
  3. CEFTRIAXONE [Concomitant]
     Active Substance: CEFTRIAXONE
     Indication: Pyrexia
     Dosage: 2 GRAM
     Route: 042
  4. CEFTRIAXONE [Concomitant]
     Active Substance: CEFTRIAXONE
     Indication: Cough
  5. UNSPECIFIED INGREDIENT [Concomitant]
     Active Substance: UNSPECIFIED INGREDIENT
     Indication: Dermatitis contact
     Dosage: INTERMITTENTLY
     Route: 003
  6. UNSPECIFIED INGREDIENT [Concomitant]
     Active Substance: UNSPECIFIED INGREDIENT
     Indication: Blister
     Dosage: UNK
     Route: 003

REACTIONS (9)
  - Abortion spontaneous [Recovered/Resolved]
  - Serratia bacteraemia [Recovering/Resolving]
  - Vaginal haemorrhage [Recovered/Resolved]
  - Preterm premature rupture of membranes [Recovered/Resolved]
  - Amniotic cavity infection [Unknown]
  - Placental infarction [Unknown]
  - Pyrexia [Recovered/Resolved]
  - Gallbladder polyp [Unknown]
  - Maternal exposure during pregnancy [Recovered/Resolved]
